FAERS Safety Report 6942595-X (Version None)
Quarter: 2010Q3

REPORT INFORMATION
  Report Type: 
  Country: None (occurrence: None)
  Receive Date: 20100823
  Receipt Date: 20100813
  Transmission Date: 20110219
  Serious: Yes (Death, Life-Threatening, Hospitalization, Other)
  Sender: FDA-Public Use
  Company Number: 2010SP040508

PATIENT
  Age: 50 Year
  Sex: Male

DRUGS (5)
  1. PEGINTERFERON ALFA-2B [Suspect]
     Indication: HEPATITIS C
     Dosage: 150 MCG;QW;SC
     Route: 058
     Dates: start: 20100303, end: 20100707
  2. RIBAVIRIN [Suspect]
     Indication: HEPATITIS C
     Dosage: 1200 MG;QD;PO
     Route: 048
     Dates: start: 20100303, end: 20100707
  3. ELTROMBOPAG (ELTROMBOPAG) [Suspect]
     Indication: THROMBOCYTOPENIA
     Dosage: 25 MG;QD;PO ; QD;PO ; 75 MG;QD;PO
     Route: 048
     Dates: start: 20100202, end: 20100217
  4. ELTROMBOPAG (ELTROMBOPAG) [Suspect]
     Indication: THROMBOCYTOPENIA
     Dosage: 25 MG;QD;PO ; QD;PO ; 75 MG;QD;PO
     Route: 048
     Dates: start: 20100303, end: 20100526
  5. ELTROMBOPAG (ELTROMBOPAG) [Suspect]
     Indication: THROMBOCYTOPENIA
     Dosage: 25 MG;QD;PO ; QD;PO ; 75 MG;QD;PO
     Route: 048
     Dates: start: 20100526, end: 20100707

REACTIONS (17)
  - ASCITES [None]
  - BLOOD CREATININE INCREASED [None]
  - BLOOD POTASSIUM DECREASED [None]
  - BLOOD SODIUM DECREASED [None]
  - COMA [None]
  - COMA HEPATIC [None]
  - DECREASED APPETITE [None]
  - ENCEPHALOPATHY [None]
  - HAEMATEMESIS [None]
  - HAEMOGLOBIN DECREASED [None]
  - HEPATIC CIRRHOSIS [None]
  - INTERNATIONAL NORMALISED RATIO INCREASED [None]
  - JAUNDICE CHOLESTATIC [None]
  - PROTHROMBIN TIME PROLONGED [None]
  - PRURITUS [None]
  - RED BLOOD CELL COUNT DECREASED [None]
  - VOMITING [None]
